FAERS Safety Report 20253257 (Version 1)
Quarter: 2021Q4

REPORT INFORMATION
  Report Type: Spontaneous
  Country: CN (occurrence: CN)
  Receive Date: 20211230
  Receipt Date: 20211230
  Transmission Date: 20220303
  Serious: Yes (Death, Hospitalization)
  Sender: FDA-Public Use
  Company Number: CN-STRIDES ARCOLAB LIMITED-2021SP031567

PATIENT
  Age: 40 Year
  Sex: Male

DRUGS (4)
  1. PREDNISOLONE [Suspect]
     Active Substance: PREDNISOLONE
     Indication: IgA nephropathy
     Dosage: SCHEDULED TO RECEIVE 40MG DAILY
     Route: 065
  2. PREDNISOLONE [Suspect]
     Active Substance: PREDNISOLONE
     Indication: Chronic kidney disease
     Dosage: TAPERED BY 20% EACH MONTH FOR THE NEXT 4 MONTHS
     Route: 065
  3. MYCOPHENOLATE MOFETIL [Suspect]
     Active Substance: MYCOPHENOLATE MOFETIL
     Indication: IgA nephropathy
     Dosage: SCHEDULED TO RECEIVE 1.5 G DAILY FOR 6 MONTHS
     Route: 065
  4. MYCOPHENOLATE MOFETIL [Suspect]
     Active Substance: MYCOPHENOLATE MOFETIL
     Indication: Chronic kidney disease

REACTIONS (4)
  - Pneumonia [Fatal]
  - Hepatotoxicity [Unknown]
  - Hepatic cirrhosis [Unknown]
  - Off label use [Unknown]
